FAERS Safety Report 21407289 (Version 3)
Quarter: 2022Q4

REPORT INFORMATION
  Report Type: Spontaneous
  Country: ES (occurrence: ES)
  Receive Date: 20221004
  Receipt Date: 20221108
  Transmission Date: 20230112
  Serious: Yes (Death, Hospitalization, Other)
  Sender: FDA-Public Use
  Company Number: ES-ASTELLAS-2022US033531

PATIENT
  Age: 70 Year
  Sex: Male

DRUGS (9)
  1. RITUXIMAB [Suspect]
     Active Substance: RITUXIMAB
     Indication: Disease progression
     Dosage: UNK, CYCLIC (RESCUE TREATMENT WITH POLYCHEMOTHERAPY, R-BAC REGIMEN)
     Route: 065
     Dates: start: 2022
  2. RITUXIMAB [Suspect]
     Active Substance: RITUXIMAB
     Dosage: UNK UNK, CYCLIC (1ST LINE CHEMOTHERAPY, R-CHOP REGIMEN, 6 CYCLES)
     Route: 065
  3. VINCRISTINE [Suspect]
     Active Substance: VINCRISTINE
     Indication: Mantle cell lymphoma stage IV
     Dosage: UNK UNK, CYCLIC (1ST LINE CHEMOTHERAPY, R-CHOP REGIMEN, 6 CYCLES)
     Route: 065
  4. DOXORUBICIN [Suspect]
     Active Substance: DOXORUBICIN
     Indication: Mantle cell lymphoma stage IV
     Dosage: UNK UNK, CYCLIC (1ST LINE CHEMOTHERAPY, R-CHOP REGIMEN, 6 CYCLES)
     Route: 065
  5. CYTARABINE [Suspect]
     Active Substance: CYTARABINE
     Indication: Disease progression
     Dosage: UNK UNK, CYCLIC (RESCUE TREATMENT WITH POLYCHEMOTHERAPY, R-BAC REGIMEN)
     Route: 065
  6. BENDAMUSTINE HYDROCHLORIDE [Suspect]
     Active Substance: BENDAMUSTINE HYDROCHLORIDE
     Indication: Disease progression
     Dosage: UNK UNK, CYCLIC (RESCUE TREATMENT WITH POLYCHEMOTHERAPY, R-BAC REGIMEN)
     Route: 065
  7. PREDNISOLONE [Suspect]
     Active Substance: PREDNISOLONE
     Indication: Mantle cell lymphoma stage IV
     Route: 065
  8. PREDNISOLONE [Suspect]
     Active Substance: PREDNISOLONE
     Route: 065
  9. CYCLOPHOSPHAMIDE [Suspect]
     Active Substance: CYCLOPHOSPHAMIDE
     Indication: Mantle cell lymphoma stage IV
     Dosage: (1ST LINE CHEMOTHERAPY, R-CHOP REGIMEN, 6 CYCLES)
     Route: 065

REACTIONS (16)
  - Nodule [Unknown]
  - Scrotal oedema [Not Recovered/Not Resolved]
  - Hydronephrosis [Unknown]
  - Neuroendocrine carcinoma of the skin [Fatal]
  - Aplasia [Unknown]
  - Back pain [Unknown]
  - Urethral obstruction [Unknown]
  - Cardiac failure [Unknown]
  - Pathogen resistance [Recovered/Resolved]
  - Malignant neoplasm progression [Fatal]
  - Pneumonia pseudomonal [Recovered/Resolved]
  - Pneumonia [Fatal]
  - Neoplasm progression [Fatal]
  - General physical health deterioration [Fatal]
  - Disease progression [Fatal]
  - Pleural effusion [Recovered/Resolved]
